FAERS Safety Report 14033328 (Version 1)
Quarter: 2017Q4

REPORT INFORMATION
  Report Type: Spontaneous
  Country: US (occurrence: US)
  Receive Date: 20171002
  Receipt Date: 20171002
  Transmission Date: 20180321
  Serious: No
  Sender: FDA-Public Use
  Company Number: US-JAZZ-2017-US-010450

PATIENT
  Sex: Female

DRUGS (29)
  1. ALPRAZOLAM. [Concomitant]
     Active Substance: ALPRAZOLAM
  2. MOTRIN [Concomitant]
     Active Substance: IBUPROFEN
  3. LEXAPRO [Concomitant]
     Active Substance: ESCITALOPRAM OXALATE
  4. TYLENOL WITH CODEINE [Concomitant]
     Active Substance: ACETAMINOPHEN\CODEINE PHOSPHATE
  5. NUVIGIL [Concomitant]
     Active Substance: ARMODAFINIL
  6. ROZEREM [Concomitant]
     Active Substance: RAMELTEON
  7. SEROQUEL [Concomitant]
     Active Substance: QUETIAPINE FUMARATE
  8. VALTREX [Concomitant]
     Active Substance: VALACYCLOVIR HYDROCHLORIDE
  9. CYTOMEL [Concomitant]
     Active Substance: LIOTHYRONINE SODIUM
  10. XYREM [Suspect]
     Active Substance: SODIUM OXYBATE
     Dosage: 3.25G, BID (SECOND DOSE)
     Route: 048
     Dates: start: 201509
  11. PROVIGIL [Concomitant]
     Active Substance: MODAFINIL
  12. AMITIZA [Concomitant]
     Active Substance: LUBIPROSTONE
  13. XANAX [Concomitant]
     Active Substance: ALPRAZOLAM
  14. ORPHENADRINE [Concomitant]
     Active Substance: ORPHENADRINE
  15. XYREM [Suspect]
     Active Substance: SODIUM OXYBATE
     Indication: NARCOLEPSY
     Dosage: 2G, BID
     Route: 048
     Dates: start: 200607, end: 200607
  16. XYREM [Suspect]
     Active Substance: SODIUM OXYBATE
     Dosage: DOSE ADJUSMENTS
     Route: 048
     Dates: start: 200607, end: 201509
  17. XYREM [Suspect]
     Active Substance: SODIUM OXYBATE
     Dosage: 3.75G, QD (FIRST DOSE)
     Route: 048
     Dates: start: 201509
  18. CYMBALTA [Concomitant]
     Active Substance: DULOXETINE HYDROCHLORIDE
  19. VITAMIN B12 [Concomitant]
     Active Substance: CYANOCOBALAMIN
  20. ALLEGRA-D                          /01367401/ [Concomitant]
  21. BUSPIRONE HCL [Concomitant]
     Active Substance: BUSPIRONE HYDROCHLORIDE
  22. PANGESTYME [Concomitant]
  23. TESTIM [Concomitant]
     Active Substance: TESTOSTERONE
  24. FIORINAL [Concomitant]
     Active Substance: ASPIRIN\BUTALBITAL\CAFFEINE
  25. REMERON [Concomitant]
     Active Substance: MIRTAZAPINE
  26. SKELAXIN [Concomitant]
     Active Substance: METAXALONE
  27. LINZESS [Concomitant]
     Active Substance: LINACLOTIDE
  28. ABILIFY [Concomitant]
     Active Substance: ARIPIPRAZOLE
  29. PRILOSEC [Concomitant]
     Active Substance: OMEPRAZOLE MAGNESIUM

REACTIONS (1)
  - Panic attack [Not Recovered/Not Resolved]
